FAERS Safety Report 13790698 (Version 2)
Quarter: 2017Q3

REPORT INFORMATION
  Report Type: Report from Study
  Country: US (occurrence: US)
  Receive Date: 20170725
  Receipt Date: 20170814
  Transmission Date: 20171127
  Serious: Yes (Hospitalization)
  Sender: FDA-Public Use
  Company Number: US-JAZZ-2017-US-009203

PATIENT
  Sex: Female

DRUGS (1)
  1. CLOZAPINE ODT [Suspect]
     Active Substance: CLOZAPINE
     Indication: PRODUCT USED FOR UNKNOWN INDICATION
     Dosage: UNK MG, QD
     Route: 048

REACTIONS (5)
  - Disruptive mood dysregulation disorder [Unknown]
  - Attention deficit/hyperactivity disorder [Unknown]
  - Borderline personality disorder [Unknown]
  - Oppositional defiant disorder [Unknown]
  - Conduct disorder [Unknown]
